FAERS Safety Report 6862129-8 (Version None)
Quarter: 2010Q3

REPORT INFORMATION
  Report Type: 
  Country: None (occurrence: None)
  Receive Date: 20100721
  Receipt Date: 20100719
  Transmission Date: 20110219
  Serious: Yes (Death)
  Sender: FDA-Public Use
  Company Number: PHHY2010US46796

PATIENT
  Sex: Male
  Weight: 58.05 kg

DRUGS (1)
  1. EXJADE [Suspect]
     Indication: MYELODYSPLASTIC SYNDROME
     Dosage: 1000 MG, QD
     Route: 048
     Dates: start: 20090401

REACTIONS (1)
  - DEATH [None]
